FAERS Safety Report 10782395 (Version 1)
Quarter: 2015Q1

REPORT INFORMATION
  Report Type: Spontaneous
  Country: US (occurrence: None)
  Receive Date: 20150209
  Receipt Date: 20150209
  Transmission Date: 20150721
  Serious: Yes (Death, Life-Threatening, Hospitalization, Disabling, Other)
  Sender: FDA-Public Use
  Company Number: None

PATIENT
  Age: 81 Year
  Sex: Male
  Weight: 65.77 kg

DRUGS (1)
  1. VIMPAT [Suspect]
     Active Substance: LACOSAMIDE
     Indication: SEIZURE
     Dosage: 3 PILLS 50MG EACH TWICE DAILY
     Route: 048
     Dates: start: 20130812

REACTIONS (7)
  - Speech disorder [None]
  - Hypophagia [None]
  - Haemorrhage [None]
  - Hallucination [None]
  - Cardiac disorder [None]
  - Abasia [None]
  - Malaise [None]

NARRATIVE: CASE EVENT DATE: 20131115
